FAERS Safety Report 18842453 (Version 1)
Quarter: 2021Q1

REPORT INFORMATION
  Report Type: Report from Study
  Country: US (occurrence: US)
  Receive Date: 20210203
  Receipt Date: 20210203
  Transmission Date: 20210419
  Serious: Yes (Other)
  Sender: FDA-Public Use
  Company Number: US-JNJFOC-20210203317

PATIENT
  Age: 42 Year
  Sex: Female

DRUGS (2)
  1. SPRAVATO [Suspect]
     Active Substance: ESKETAMINE
     Indication: DEPRESSION
     Dates: start: 20200511, end: 20200511
  2. SPRAVATO [Suspect]
     Active Substance: ESKETAMINE
     Dates: start: 20200513, end: 20200513

REACTIONS (4)
  - Sedation [Recovered/Resolved]
  - Tongue discomfort [Recovered/Resolved]
  - Dissociation [Recovered/Resolved]
  - Headache [Recovered/Resolved]

NARRATIVE: CASE EVENT DATE: 20200512
